FAERS Safety Report 24981740 (Version 1)
Quarter: 2025Q1

REPORT INFORMATION
  Report Type: Spontaneous
  Country: PR (occurrence: PR)
  Receive Date: 20250218
  Receipt Date: 20250218
  Transmission Date: 20250409
  Serious: Yes (Other)
  Sender: ABBVIE
  Company Number: PR-ABBVIE-6138662

PATIENT
  Age: 37 Year
  Sex: Male

DRUGS (1)
  1. SKYRIZI [Suspect]
     Active Substance: RISANKIZUMAB-RZAA
     Indication: Psoriasis
     Route: 058
     Dates: start: 202502

REACTIONS (1)
  - Stevens-Johnson syndrome [Recovering/Resolving]

NARRATIVE: CASE EVENT DATE: 20250201
